FAERS Safety Report 9397484 (Version 1)
Quarter: 2013Q3

REPORT INFORMATION
  Report Type: Spontaneous
  Country: US (occurrence: None)
  Receive Date: 20130711
  Receipt Date: 20130711
  Transmission Date: 20140515
  Serious: Yes (Hospitalization)
  Sender: FDA-Public Use
  Company Number: None

PATIENT
  Age: 77 Year
  Sex: Male

DRUGS (1)
  1. ZELBORAF [Suspect]
     Dosage: 240MG - 2 TAB Q12 HOURS
     Route: 048
     Dates: start: 20130529, end: 20130619

REACTIONS (1)
  - Tachycardia [None]
